FAERS Safety Report 9433357 (Version 1)
Quarter: 2013Q3

REPORT INFORMATION
  Report Type: Spontaneous
  Country: AU (occurrence: AU)
  Receive Date: 20130731
  Receipt Date: 20130731
  Transmission Date: 20140515
  Serious: Yes (Hospitalization, Disabling)
  Sender: FDA-Public Use
  Company Number: AU-ASTRAZENECA-2013SE56726

PATIENT
  Age: 88 Year
  Sex: Female

DRUGS (12)
  1. SYMBICORT [Suspect]
     Dosage: 200/6 UG, TWO TIMES DAILY
     Route: 055
     Dates: start: 20101124
  2. CLOPIDOGREL [Suspect]
     Route: 048
     Dates: start: 20120628
  3. PARACETAMOL [Suspect]
     Route: 048
     Dates: start: 20121030
  4. RAMIPRIL [Suspect]
     Route: 048
     Dates: start: 20120626
  5. TERBUTALINE SULPHATE [Suspect]
     Route: 055
     Dates: start: 20100902
  6. BUPRENORPHINE HYDROCHLORIDE [Suspect]
     Route: 061
     Dates: start: 20130414
  7. ENDONE [Suspect]
     Dates: start: 20130308
  8. FUROSEMIDE [Suspect]
     Route: 048
     Dates: start: 20120628
  9. GLYCERYL TRINITRATE [Suspect]
     Route: 061
     Dates: start: 20120628
  10. SALBUTAMOL [Suspect]
     Route: 055
     Dates: start: 20100902
  11. SPIRONOLACTONE [Suspect]
     Route: 048
     Dates: start: 20130304
  12. TEMAZEPAM [Suspect]
     Route: 048
     Dates: start: 20110408

REACTIONS (2)
  - Deafness bilateral [Not Recovered/Not Resolved]
  - Angioedema [Not Recovered/Not Resolved]
